FAERS Safety Report 6176860-3 (Version None)
Quarter: 2009Q2

REPORT INFORMATION
  Report Type: 
  Country: None (occurrence: None)
  Receive Date: 20090501
  Receipt Date: 20090424
  Transmission Date: 20091009
  Serious: Yes (Hospitalization)
  Sender: FDA-Public Use
  Company Number: FR-ABBOTT-09P-056-0568509-00

PATIENT
  Sex: Male

DRUGS (7)
  1. ENANTONE 30 MG [Suspect]
     Indication: PROSTATE CANCER
     Route: 058
     Dates: start: 20090402
  2. ATACAND [Concomitant]
     Indication: HYPERTENSION
     Route: 048
     Dates: start: 20061204
  3. ALLOPURINOL [Concomitant]
     Indication: HYPERURICAEMIA
     Route: 048
     Dates: start: 20030920
  4. PARIET [Concomitant]
     Indication: HIATUS HERNIA
     Route: 048
     Dates: start: 20080117
  5. KARDEGIC [Concomitant]
     Indication: CAROTID ARTERY STENOSIS
     Route: 048
     Dates: start: 20030902
  6. CADUET [Concomitant]
     Indication: HYPERTENSION
     Route: 048
     Dates: start: 20070809
  7. CADUET [Concomitant]
     Indication: DYSLIPIDAEMIA

REACTIONS (6)
  - BLOOD PRESSURE DECREASED [None]
  - HOT FLUSH [None]
  - HYPERHIDROSIS [None]
  - INJECTION SITE OEDEMA [None]
  - MALAISE [None]
  - SYNCOPE [None]
